FAERS Safety Report 9684448 (Version 6)
Quarter: 2014Q4

REPORT INFORMATION
  Report Type: Report from Study
  Country: US (occurrence: US)
  Receive Date: 20131112
  Receipt Date: 20141205
  Transmission Date: 20150529
  Serious: Yes (Hospitalization, Other)
  Sender: FDA-Public Use
  Company Number: US-ALEXION PHARMACEUTICALS INC.-A201302978

PATIENT

DRUGS (3)
  1. CIDOFOVIR. [Concomitant]
     Active Substance: CIDOFOVIR
     Indication: PRODUCT USED FOR UNKNOWN INDICATION
     Dosage: UNK, QW
     Route: 065
  2. SOLIRIS [Suspect]
     Active Substance: ECULIZUMAB
     Indication: HAEMOLYTIC URAEMIC SYNDROME
     Dosage: 1200 MG, Q2W
     Route: 042
     Dates: start: 20130424
  3. CIDOFOVIR. [Concomitant]
     Active Substance: CIDOFOVIR
     Dosage: UNK
     Route: 065

REACTIONS (7)
  - Blood lactate dehydrogenase increased [Unknown]
  - Blood creatinine increased [Unknown]
  - Fluid overload [Recovering/Resolving]
  - Renal transplant [Recovering/Resolving]
  - BK virus infection [Unknown]
  - Thrombotic microangiopathy [Unknown]
  - Thrombocytopenia [Unknown]

NARRATIVE: CASE EVENT DATE: 2014
